FAERS Safety Report 14679236 (Version 2)
Quarter: 2018Q2

REPORT INFORMATION
  Report Type: Spontaneous
  Country: US (occurrence: US)
  Receive Date: 20180326
  Receipt Date: 20180507
  Transmission Date: 20180711
  Serious: No
  Sender: FDA-Public Use
  Company Number: US-PFIZER INC-2018122559

PATIENT
  Age: 42 Year
  Sex: Female
  Weight: 46.72 kg

DRUGS (3)
  1. ADVIL [Suspect]
     Active Substance: IBUPROFEN
     Indication: MUSCULOSKELETAL STIFFNESS
     Dosage: 400 MG, THREE TIMES A DAY
  2. ADVIL [Suspect]
     Active Substance: IBUPROFEN
     Indication: PAIN
  3. ADVIL [Suspect]
     Active Substance: IBUPROFEN
     Indication: PARAESTHESIA

REACTIONS (1)
  - Rebound effect [Unknown]
